FAERS Safety Report 23638510 (Version 1)
Quarter: 2024Q1

REPORT INFORMATION
  Report Type: Spontaneous
  Country: CA (occurrence: CA)
  Receive Date: 20240315
  Receipt Date: 20240315
  Transmission Date: 20240410
  Serious: Yes (Other)
  Sender: FDA-Public Use
  Company Number: CA-SUN PHARMACEUTICAL INDUSTRIES LTD-2024R1-436139

PATIENT
  Sex: Male
  Weight: 1.095 kg

DRUGS (1)
  1. INDOMETHACIN [Suspect]
     Active Substance: INDOMETHACIN
     Indication: Patent ductus arteriosus
     Dosage: UNK
     Route: 065

REACTIONS (4)
  - Intraventricular haemorrhage [Recovering/Resolving]
  - Therapeutic response decreased [Unknown]
  - Peripheral swelling [Recovering/Resolving]
  - Metaphyseal corner fracture [Recovering/Resolving]
